FAERS Safety Report 8773715 (Version 1)
Quarter: 2012Q4

REPORT INFORMATION
  Report Type: 
  Country: JP (occurrence: JP)
  Receive Date: 20120907
  Receipt Date: 20120907
  Transmission Date: 20130627
  Serious: Yes (Hospitalization, Other)
  Sender: FDA-Public Use
  Company Number: JP-MPIJNJ-2012-06107

PATIENT

DRUGS (4)
  1. VELCADE [Suspect]
     Indication: PRODUCT USED FOR UNKNOWN INDICATION
     Dosage: UNK
     Route: 065
     Dates: start: 201107
  2. METHYCOBAL                         /00324901/ [Concomitant]
     Indication: HYPOAESTHESIA
     Route: 048
  3. RIVOTRIL [Concomitant]
     Indication: HYPOAESTHESIA
     Route: 048
  4. LYRICA [Concomitant]
     Route: 048

REACTIONS (2)
  - Protein total abnormal [Not Recovered/Not Resolved]
  - Hypoaesthesia [Not Recovered/Not Resolved]
